FAERS Safety Report 10461775 (Version 2)
Quarter: 2015Q1

REPORT INFORMATION
  Report Type: Spontaneous
  Country: DK (occurrence: DK)
  Receive Date: 20140918
  Receipt Date: 20150203
  Transmission Date: 20150720
  Serious: Yes (Other)
  Sender: FDA-Public Use
  Company Number: DK-SA-2014SA126392

PATIENT
  Age: 43 Year
  Sex: Female

DRUGS (2)
  1. AUBAGIO [Suspect]
     Active Substance: TERIFLUNOMIDE
     Indication: MULTIPLE SCLEROSIS
     Dosage: STYRKE: 14 MG
     Route: 048
     Dates: start: 20140325
  2. ELTROXIN [Concomitant]
     Active Substance: LEVOTHYROXINE
     Indication: MYXOEDEMA

REACTIONS (5)
  - Vision blurred [Not Recovered/Not Resolved]
  - Iridocyclitis [Not Recovered/Not Resolved]
  - Uveitis [Unknown]
  - Vasculitis [Unknown]
  - Cystoid macular oedema [Unknown]

NARRATIVE: CASE EVENT DATE: 2014
